FAERS Safety Report 6328022-4 (Version None)
Quarter: 2009Q3

REPORT INFORMATION
  Report Type: 
  Country: None (occurrence: None)
  Receive Date: 20090825
  Receipt Date: 20081009
  Transmission Date: 20100115
  Serious: No
  Sender: FDA-Public Use
  Company Number: US-ABBOTT-08P-163-0480675-00

PATIENT
  Sex: Female

DRUGS (4)
  1. SYNTHROID [Suspect]
     Indication: THYROID NEOPLASM
     Route: 048
     Dates: start: 20040101
  2. SYNTHROID [Suspect]
     Indication: HYPOTHYROIDISM
  3. ALENDRONATE SODIUM [Concomitant]
     Indication: DRUG USE FOR UNKNOWN INDICATION
  4. TRAMADOL HCL [Concomitant]
     Indication: DRUG USE FOR UNKNOWN INDICATION

REACTIONS (2)
  - FATIGUE [None]
  - NAUSEA [None]
